FAERS Safety Report 15226243 (Version 1)
Quarter: 2018Q3

REPORT INFORMATION
  Report Type: Spontaneous
  Country: US (occurrence: US)
  Receive Date: 20180706
  Receipt Date: 20180706
  Transmission Date: 20181010
  Serious: Yes (Disabling)
  Sender: FDA-Public Use
  Company Number: None

PATIENT
  Age: 53 Year
  Sex: Female
  Weight: 92.7 kg

DRUGS (1)
  1. LAMOTRIGINE ER 200 MG TABLETS [Suspect]
     Active Substance: LAMOTRIGINE
     Indication: BIPOLAR DISORDER
     Dosage: ?          QUANTITY:2 TABLET(S);?
     Route: 048
     Dates: end: 20180705

REACTIONS (4)
  - Product quality issue [None]
  - Malaise [None]
  - Withdrawal syndrome [None]
  - Vomiting [None]

NARRATIVE: CASE EVENT DATE: 20180705
